FAERS Safety Report 7434171-X (Version None)
Quarter: 2011Q2

REPORT INFORMATION
  Report Type: 
  Country: None (occurrence: None)
  Receive Date: 20110425
  Receipt Date: 20110418
  Transmission Date: 20111010
  Serious: Yes (Other)
  Sender: FDA-Public Use
  Company Number: US-PFIZER INC-2011084844

PATIENT
  Sex: Female
  Weight: 54.422 kg

DRUGS (3)
  1. METHOTREXATE [Concomitant]
     Indication: INFLAMMATION
     Dosage: UNK
     Route: 048
  2. FOLIC ACID [Concomitant]
     Dosage: 1 MG, 1X/DAY
     Route: 048
  3. CELEBREX [Suspect]
     Indication: ARTHRALGIA
     Dosage: 200 MG, 1X/DAY
     Route: 048
     Dates: start: 20110326, end: 20110418

REACTIONS (2)
  - HYPERSENSITIVITY [None]
  - RASH GENERALISED [None]
